FAERS Safety Report 25804565 (Version 1)
Quarter: 2025Q3

REPORT INFORMATION
  Report Type: Spontaneous
  Country: EU (occurrence: EU)
  Receive Date: 20250915
  Receipt Date: 20250915
  Transmission Date: 20251020
  Serious: Yes (Hospitalization)
  Sender: PURDUE
  Company Number: EU-PURDUE-USA-2025-0320532

PATIENT
  Age: 97 Year
  Sex: Male

DRUGS (6)
  1. OXYCODONE HYDROCHLORIDE [Suspect]
     Active Substance: OXYCODONE HYDROCHLORIDE
     Indication: Pain
     Dosage: 5 MILLIGRAM, DAILY (LONG-TERM)
     Route: 048
     Dates: end: 20250808
  2. OXYCODONE HYDROCHLORIDE [Suspect]
     Active Substance: OXYCODONE HYDROCHLORIDE
     Indication: Pain
     Dosage: 10 MILLIGRAM, DAILY (LP, LONG-TERM COMMITMENT)
     Route: 048
     Dates: end: 20250808
  3. MIDAZOLAM HYDROCHLORIDE [Suspect]
     Active Substance: MIDAZOLAM HYDROCHLORIDE
     Indication: Aggression
     Route: 058
     Dates: start: 20250808, end: 20250808
  4. OXAZEPAM [Suspect]
     Active Substance: OXAZEPAM
     Indication: Behaviour disorder
     Dosage: 10 MILLIGRAM, DAILY (LONG-TERM COMMITMENT)
     Route: 048
     Dates: end: 20250808
  5. LOXAPINE [Suspect]
     Active Substance: LOXAPINE
     Indication: Behaviour disorder
     Dosage: 10 MILLIGRAM, DAILY (LONG-TERM COMMITMENT)
     Route: 048
     Dates: end: 20250808
  6. MIRTAZAPINE [Suspect]
     Active Substance: MIRTAZAPINE
     Indication: Depression
     Dosage: 30 MILLIGRAM, DAILY (LONG-TERM COMMITMENT)
     Route: 048
     Dates: end: 20250808

REACTIONS (2)
  - Pneumonia aspiration [Recovered/Resolved]
  - Somnolence [Recovered/Resolved]

NARRATIVE: CASE EVENT DATE: 20250808
